FAERS Safety Report 8919872 (Version 3)
Quarter: 2013Q3

REPORT INFORMATION
  Report Type: Spontaneous
  Country: US (occurrence: US)
  Receive Date: 20121121
  Receipt Date: 20130729
  Transmission Date: 20140515
  Serious: Yes (Hospitalization)
  Sender: FDA-Public Use
  Company Number: US-BAYER-2012-119938

PATIENT
  Age: 19 Year
  Sex: Female
  Weight: 58.96 kg

DRUGS (10)
  1. YAZ [Suspect]
     Indication: ACNE
  2. YAZ [Suspect]
     Indication: PREMENSTRUAL DYSPHORIC DISORDER
  3. YAZ [Suspect]
     Indication: PREMENSTRUAL SYNDROME
  4. BACTRIM [Concomitant]
     Route: 048
  5. CLARITIN [Concomitant]
     Route: 048
  6. BENADRYL [Concomitant]
     Dosage: UNK UNK, PRN
     Route: 048
  7. FLU VACCINATION [Concomitant]
     Route: 048
  8. SULFA [Concomitant]
  9. TYLENOL [Concomitant]
     Indication: PAIN
  10. TYLENOL [Concomitant]
     Indication: PYREXIA

REACTIONS (8)
  - Deep vein thrombosis [None]
  - Deep vein thrombosis [None]
  - Injury [None]
  - Pain [None]
  - General physical health deterioration [None]
  - Anxiety [None]
  - Emotional distress [None]
  - Pain [None]
